FAERS Safety Report 6957986-0 (Version None)
Quarter: 2010Q3

REPORT INFORMATION
  Report Type: 
  Country: None (occurrence: None)
  Receive Date: 20100831
  Receipt Date: 20100824
  Transmission Date: 20110219
  Serious: Yes (Death)
  Sender: FDA-Public Use
  Company Number: TR-SANOFI-AVENTIS-2010SA050450

PATIENT
  Age: 70 Year
  Sex: Male
  Weight: 94 kg

DRUGS (7)
  1. INSULIN GLARGINE [Suspect]
     Route: 058
     Dates: start: 20091101
  2. SOLOSTAR [Suspect]
     Dates: start: 20091101
  3. DIAMICRON [Concomitant]
     Route: 048
     Dates: start: 20030101
  4. METFORMIN HCL [Concomitant]
     Route: 048
     Dates: start: 20030101
  5. DIOVAN HCT [Concomitant]
     Indication: HYPERTENSION
     Dosage: 160MG/12.5 MG
     Route: 048
  6. METOPROLOL SUCCINATE [Concomitant]
     Route: 048
  7. METOPROLOL SUCCINATE [Concomitant]
     Indication: HYPERTENSION
     Route: 048

REACTIONS (1)
  - DEATH [None]
